FAERS Safety Report 6367801-4 (Version None)
Quarter: 2009Q3

REPORT INFORMATION
  Report Type: 
  Country: None (occurrence: None)
  Receive Date: 20090921
  Receipt Date: 20090910
  Transmission Date: 20100115
  Serious: Yes (Death, Other)
  Sender: FDA-Public Use
  Company Number: US-BAXTER-2009BH005989

PATIENT
  Age: 77 Year
  Sex: Male

DRUGS (29)
  1. HEPARIN SODIUM INJECTION [Suspect]
     Indication: PERIPHERAL ISCHAEMIA
     Route: 042
     Dates: start: 20070129, end: 20070129
  2. HEPARIN SODIUM INJECTION [Suspect]
     Indication: MYOCARDIAL INFARCTION
     Route: 042
     Dates: start: 20070129, end: 20070129
  3. HEPARIN SODIUM INJECTION [Suspect]
     Route: 042
     Dates: start: 20070130, end: 20070130
  4. HEPARIN SODIUM INJECTION [Suspect]
     Route: 042
     Dates: start: 20070130, end: 20070130
  5. HEPARIN SODIUM INJECTION [Suspect]
     Route: 042
     Dates: start: 20070201, end: 20070201
  6. HEPARIN SODIUM INJECTION [Suspect]
     Route: 042
     Dates: start: 20070201, end: 20070201
  7. HEPARIN SODIUM INJECTION [Suspect]
     Route: 042
     Dates: start: 20070209, end: 20070209
  8. HEPARIN SODIUM INJECTION [Suspect]
     Route: 042
     Dates: start: 20070209, end: 20070209
  9. HEPARIN SODIUM INJECTION [Suspect]
     Route: 042
     Dates: start: 20070224, end: 20070224
  10. HEPARIN SODIUM INJECTION [Suspect]
     Route: 042
     Dates: start: 20070224, end: 20070224
  11. HEPARIN SODIUM INJECTION [Suspect]
     Route: 042
     Dates: start: 20070225, end: 20070225
  12. HEPARIN SODIUM INJECTION [Suspect]
     Route: 042
     Dates: start: 20070225, end: 20070225
  13. HEPARIN SODIUM INJECTION [Suspect]
     Route: 042
     Dates: start: 20070312, end: 20070312
  14. HEPARIN SODIUM INJECTION [Suspect]
     Route: 042
     Dates: start: 20070312, end: 20070312
  15. HEPARIN SODIUM INJECTION [Suspect]
     Route: 042
     Dates: start: 20070314, end: 20070314
  16. HEPARIN SODIUM INJECTION [Suspect]
     Route: 042
     Dates: start: 20070314, end: 20070314
  17. HEPARIN SODIUM INJECTION [Suspect]
     Route: 042
     Dates: start: 20070316, end: 20070316
  18. HEPARIN SODIUM INJECTION [Suspect]
     Route: 042
     Dates: start: 20070316, end: 20070316
  19. HEPARIN SODIUM INJECTION [Suspect]
     Route: 042
     Dates: start: 20070318, end: 20070318
  20. HEPARIN SODIUM INJECTION [Suspect]
     Route: 042
     Dates: start: 20070318, end: 20070318
  21. METOPROLOL TARTRATE [Concomitant]
     Indication: DRUG USE FOR UNKNOWN INDICATION
     Route: 065
  22. LOTREL [Concomitant]
     Indication: DRUG USE FOR UNKNOWN INDICATION
     Route: 065
  23. DIGOXIN [Concomitant]
     Indication: DRUG USE FOR UNKNOWN INDICATION
     Route: 065
  24. ASPIRIN [Concomitant]
     Indication: DRUG USE FOR UNKNOWN INDICATION
     Route: 065
  25. ZETIA [Concomitant]
     Indication: DRUG USE FOR UNKNOWN INDICATION
     Route: 065
  26. GATIFLOXACIN [Concomitant]
     Indication: DRUG USE FOR UNKNOWN INDICATION
     Route: 065
  27. LASIX [Concomitant]
     Indication: DRUG USE FOR UNKNOWN INDICATION
     Route: 065
  28. GLUCOPHAGE [Concomitant]
     Indication: DRUG USE FOR UNKNOWN INDICATION
     Route: 065
  29. WARFARIN SODIUM [Concomitant]
     Indication: DRUG USE FOR UNKNOWN INDICATION
     Route: 065

REACTIONS (18)
  - ACUTE MYOCARDIAL INFARCTION [None]
  - ANAEMIA [None]
  - CLOSTRIDIUM DIFFICILE COLITIS [None]
  - DEATH [None]
  - DECUBITUS ULCER [None]
  - DIARRHOEA [None]
  - DYSPNOEA [None]
  - EMBOLISM [None]
  - GASTROINTESTINAL HAEMORRHAGE [None]
  - HEPATIC FAILURE [None]
  - HYPERNATRAEMIA [None]
  - LETHARGY [None]
  - MALNUTRITION [None]
  - METABOLIC ENCEPHALOPATHY [None]
  - OBSTRUCTIVE UROPATHY [None]
  - RENAL FAILURE [None]
  - UNRESPONSIVE TO STIMULI [None]
  - URINARY TRACT INFECTION [None]
